FAERS Safety Report 23872300 (Version 9)
Quarter: 2025Q4

REPORT INFORMATION
  Report Type: Report from Study
  Country: US (occurrence: None)
  Receive Date: 20240520
  Receipt Date: 20251216
  Transmission Date: 20260117
  Serious: Yes (Other)
  Sender: UCB
  Company Number: US-UCBSA-2022071069

PATIENT
  Age: 8 Year
  Weight: 35 kg

DRUGS (10)
  1. FENFLURAMINE [Suspect]
     Active Substance: FENFLURAMINE
     Indication: Lennox-Gastaut syndrome
     Dosage: 4.7 MILLILITER, 2X/DAY (BID)
  2. FENFLURAMINE [Suspect]
     Active Substance: FENFLURAMINE
     Indication: Seizure
     Dosage: 4.7 MILLILITER, 2X/DAY (BID)
  3. FENFLURAMINE [Suspect]
     Active Substance: FENFLURAMINE
     Dosage: 4.7 MILLILITER, 2X/DAY (BID)
  4. FENFLURAMINE [Suspect]
     Active Substance: FENFLURAMINE
     Dosage: 4.7 MILLILITER, 2X/DAY (BID)
  5. FENFLURAMINE [Suspect]
     Active Substance: FENFLURAMINE
     Dosage: 5.3 MILLILITER, 2X/DAY (BID)
  6. FENFLURAMINE [Suspect]
     Active Substance: FENFLURAMINE
     Dosage: 5.3 MILLILITER, 2X/DAY (BID)
  7. FENFLURAMINE [Suspect]
     Active Substance: FENFLURAMINE
     Dosage: 5.3 MILLILITER, 2X/DAY (BID)
  8. FENFLURAMINE [Suspect]
     Active Substance: FENFLURAMINE
     Dosage: 5.3 MILLILITER, 2X/DAY (BID)
  9. FENFLURAMINE [Suspect]
     Active Substance: FENFLURAMINE
     Dosage: UNK
  10. FENFLURAMINE [Suspect]
     Active Substance: FENFLURAMINE
     Dosage: 0.55 MG/KG/DAY TO A TOTAL DOSE OF 23.3 MG/DAY

REACTIONS (18)
  - Generalised tonic-clonic seizure [Not Recovered/Not Resolved]
  - Loss of consciousness [Not Recovered/Not Resolved]
  - Autism spectrum disorder [Unknown]
  - Lethargy [Recovered/Resolved]
  - Decreased appetite [Recovered/Resolved with Sequelae]
  - Disturbance in attention [Recovered/Resolved]
  - Weight decreased [Recovering/Resolving]
  - Somnolence [Not Recovered/Not Resolved]
  - Precocious puberty [Not Recovered/Not Resolved]
  - Fall [Not Recovered/Not Resolved]
  - Concussion [Not Recovered/Not Resolved]
  - Agitation [Not Recovered/Not Resolved]
  - Speech disorder [Not Recovered/Not Resolved]
  - Menstruation delayed [Recovering/Resolving]
  - Premenstrual syndrome [Not Recovered/Not Resolved]
  - Product use complaint [Unknown]
  - Wrong technique in product usage process [Unknown]
  - Product taste abnormal [Unknown]
